FAERS Safety Report 9679154 (Version 1)
Quarter: 2013Q4

REPORT INFORMATION
  Report Type: Report from Study
  Country: CO (occurrence: CO)
  Receive Date: 20131108
  Receipt Date: 20131108
  Transmission Date: 20140711
  Serious: Yes (Hospitalization)
  Sender: FDA-Public Use
  Company Number: CO-ABBVIE-13P-036-1167406-00

PATIENT
  Age: 41 Year
  Sex: Male
  Weight: 46 kg

DRUGS (1)
  1. HUMIRA [Suspect]
     Indication: CROHN^S DISEASE
     Route: 058
     Dates: start: 20110620

REACTIONS (3)
  - Blood electrolytes decreased [Not Recovered/Not Resolved]
  - Renal failure acute [Not Recovered/Not Resolved]
  - Herpes virus infection [Not Recovered/Not Resolved]
